FAERS Safety Report 9321380 (Version 1)
Quarter: 2013Q2

REPORT INFORMATION
  Report Type: Spontaneous
  Country: US (occurrence: US)
  Receive Date: 20130531
  Receipt Date: 20130531
  Transmission Date: 20140414
  Serious: Yes (Hospitalization)
  Sender: FDA-Public Use
  Company Number: US-PURDUE-USA-2013-0102872

PATIENT
  Sex: Female

DRUGS (1)
  1. COLACE [Suspect]
     Indication: CONSTIPATION
     Dosage: 2 CAPSL, DAILY
     Route: 048

REACTIONS (2)
  - Hospitalisation [Unknown]
  - Constipation [Unknown]
